FAERS Safety Report 23949731 (Version 2)
Quarter: 2024Q2

REPORT INFORMATION
  Report Type: Spontaneous
  Country: CN (occurrence: CN)
  Receive Date: 20240607
  Receipt Date: 20240610
  Transmission Date: 20240715
  Serious: Yes (Life-Threatening, Hospitalization, Other)
  Sender: FDA-Public Use
  Company Number: CN-PFIZER INC-PV202400072162

PATIENT
  Age: 55 Year
  Sex: Male

DRUGS (4)
  1. PACLITAXEL [Suspect]
     Active Substance: PACLITAXEL
     Indication: Thymic carcinoma
     Dosage: CYCLIC (2 CYCLES)
  2. DOCETAXEL [Suspect]
     Active Substance: DOCETAXEL\DOCETAXEL ANHYDROUS
     Indication: Thymic carcinoma
     Dosage: CYCLIC (6 CYCLES)
  3. PLATINUM [Suspect]
     Active Substance: PLATINUM
     Indication: Thymic carcinoma
     Dosage: CYCLIC (6 CYCLES)
  4. CISPLATIN [Suspect]
     Active Substance: CISPLATIN
     Indication: Thymic carcinoma
     Dosage: CYCLIC (2 CYCLES)

REACTIONS (1)
  - Acute myocardial infarction [Recovering/Resolving]
